FAERS Safety Report 4711481-8 (Version None)
Quarter: 2005Q3

REPORT INFORMATION
  Report Type: 
  Country: None (occurrence: None)
  Receive Date: 20050711
  Receipt Date: 20050628
  Transmission Date: 20060218
  Serious: Yes (Death, Hospitalization)
  Sender: FDA-Public Use
  Company Number: 215718

PATIENT
  Age: 66 Year
  Sex: Female

DRUGS (7)
  1. RAPTIVA [Suspect]
     Indication: PSORIASIS
     Dosage: UNK MG, 1/WEEK, UNK
     Dates: start: 20040201
  2. PREDNISONE [Concomitant]
  3. ALLOPURINOL [Concomitant]
  4. PREVACID [Concomitant]
  5. ZESTRIL [Concomitant]
  6. ZIAC [Concomitant]
  7. VALTREX [Concomitant]

REACTIONS (5)
  - AORTIC THROMBOSIS [None]
  - ARTERIAL THROMBOSIS LIMB [None]
  - GASTROINTESTINAL DISORDER [None]
  - POST PROCEDURAL COMPLICATION [None]
  - SMALL INTESTINAL PERFORATION [None]
